FAERS Safety Report 4726129-6 (Version None)
Quarter: 2005Q3

REPORT INFORMATION
  Report Type: 
  Country: None (occurrence: None)
  Receive Date: 20050725
  Receipt Date: 20050713
  Transmission Date: 20060218
  Serious: Yes (Other)
  Sender: FDA-Public Use
  Company Number: 2005060507

PATIENT
  Age: 39 Year
  Sex: Female

DRUGS (9)
  1. BEXTRA [Suspect]
     Indication: FIBROMYALGIA
     Dosage: 120 MG (40 MG, 3 IN 1 D), ORAL
     Route: 048
     Dates: start: 20040101, end: 20040101
  2. DOLANTINA                           (PETHIDINE HYDROCHLORIDE) [Suspect]
     Indication: ILL-DEFINED DISORDER
  3. RANITIDINE HCL [Suspect]
     Indication: ILL-DEFINED DISORDER
  4. DECADRON [Suspect]
     Indication: ILL-DEFINED DISORDER
  5. KETOPROFEN [Concomitant]
  6. CARBAMAZEPINE [Concomitant]
  7. CODEINE SUL TAB [Concomitant]
  8. TRAMADOL HCL [Concomitant]
  9. AMPLICTIL (CHLORPROMAZINE) [Concomitant]

REACTIONS (3)
  - DRUG HYPERSENSITIVITY [None]
  - ERYTHEMA [None]
  - PRURITUS [None]
